FAERS Safety Report 16300964 (Version 2)
Quarter: 2019Q2

REPORT INFORMATION
  Report Type: Spontaneous
  Country: DE (occurrence: DE)
  Receive Date: 20190510
  Receipt Date: 20190521
  Transmission Date: 20190711
  Serious: Yes (Other)
  Sender: FDA-Public Use
  Company Number: DE-009507513-1905DEU004416

PATIENT
  Sex: Female

DRUGS (3)
  1. TIMOPTOL [Concomitant]
     Active Substance: TIMOLOL
     Dosage: UNK
  2. DORZOLAMIDE HYDROCHLORIDE. [Suspect]
     Active Substance: DORZOLAMIDE HYDROCHLORIDE
     Dosage: UNK
     Route: 065
  3. COSOPT S [Concomitant]
     Dosage: UNK

REACTIONS (3)
  - Nausea [Unknown]
  - Autoimmune hepatitis [Unknown]
  - Fatigue [Unknown]
